FAERS Safety Report 4300831-2 (Version None)
Quarter: 2004Q1

REPORT INFORMATION
  Report Type: 
  Country: None (occurrence: None)
  Receive Date: 20040220
  Receipt Date: 20040212
  Transmission Date: 20041129
  Serious: Yes (Hospitalization)
  Sender: FDA-Public Use
  Company Number: WAES 0402NLD00007

PATIENT
  Age: 33 Year
  Sex: Female

DRUGS (4)
  1. DOXYCYCLINE [Concomitant]
     Route: 048
     Dates: start: 20000101
  2. FLUTICASONE PROPIONATE [Concomitant]
     Route: 055
  3. SINGULAIR [Suspect]
     Indication: ASTHMA
     Route: 048
     Dates: start: 20020101, end: 20020101
  4. PREDNISOLONE [Concomitant]
     Indication: ASTHMA EXACERBATION PROPHYLAXIS
     Route: 048
     Dates: start: 20020101

REACTIONS (6)
  - ALLERGIC GRANULOMATOUS ANGIITIS [None]
  - DYSPNOEA [None]
  - EOSINOPHILIA [None]
  - NODULAR VASCULITIS [None]
  - PERIORBITAL OEDEMA [None]
  - POLYARTHRITIS [None]
